FAERS Safety Report 25496620 (Version 3)
Quarter: 2025Q3

REPORT INFORMATION
  Report Type: Report from Study
  Country: US (occurrence: US)
  Receive Date: 20250630
  Receipt Date: 20250729
  Transmission Date: 20251021
  Serious: Yes (Other)
  Sender: ABBVIE
  Company Number: US-ABBVIE-6344859

PATIENT
  Age: 45 Year
  Sex: Male

DRUGS (2)
  1. SKYRIZI [Suspect]
     Active Substance: RISANKIZUMAB-RZAA
     Indication: Psoriasis
     Route: 058
     Dates: start: 20240109, end: 202504
  2. SKYRIZI [Suspect]
     Active Substance: RISANKIZUMAB-RZAA
     Route: 058
     Dates: start: 20220512

REACTIONS (5)
  - Fibula fracture [Not Recovered/Not Resolved]
  - Psoriasis [Recovering/Resolving]
  - Joint injury [Recovering/Resolving]
  - Accident [Unknown]
  - Skeletal injury [Recovering/Resolving]

NARRATIVE: CASE EVENT DATE: 20250101
